FAERS Safety Report 9163250 (Version 3)
Quarter: 2017Q3

REPORT INFORMATION
  Report Type: Spontaneous
  Country: US (occurrence: US)
  Receive Date: 20130314
  Receipt Date: 20170926
  Transmission Date: 20171128
  Serious: Yes (Hospitalization, Other)
  Sender: FDA-Public Use
  Company Number: US-ROCHE-1201201

PATIENT
  Age: 63 Year
  Sex: Female

DRUGS (4)
  1. FOSAMAX [Suspect]
     Active Substance: ALENDRONATE SODIUM
     Indication: OSTEOPOROSIS
     Route: 048
     Dates: start: 199602
  2. BONIVA [Suspect]
     Active Substance: IBANDRONATE SODIUM
     Indication: OSTEOPENIA
     Route: 048
     Dates: start: 200606, end: 20100827
  3. FOSAMAX [Suspect]
     Active Substance: ALENDRONATE SODIUM
     Indication: OSTEOPENIA
     Route: 048
     Dates: start: 20021122, end: 200605
  4. BONIVA [Suspect]
     Active Substance: IBANDRONATE SODIUM
     Indication: OSTEOPOROSIS
     Route: 048
     Dates: start: 200211

REACTIONS (28)
  - Parotitis [Unknown]
  - Dysphagia [Unknown]
  - Back pain [Unknown]
  - Diastasis recti abdominis [Unknown]
  - Breast calcifications [Unknown]
  - Osteoarthritis [Unknown]
  - Hepatic function abnormal [Unknown]
  - Ovarian cyst [Unknown]
  - Diverticulum intestinal [Unknown]
  - Ascites [Unknown]
  - Dysuria [Unknown]
  - Pleurisy [Unknown]
  - Decreased appetite [Unknown]
  - Haematuria [Unknown]
  - Femur fracture [Unknown]
  - Stress fracture [Unknown]
  - Anxiety [Unknown]
  - Rhinitis allergic [Unknown]
  - Vertigo [Unknown]
  - Otitis media [Unknown]
  - Pleural effusion [Unknown]
  - Arteriosclerosis [Unknown]
  - Cardiomegaly [Unknown]
  - Urinary incontinence [Unknown]
  - Deep vein thrombosis [Unknown]
  - Spinal column stenosis [Unknown]
  - Emotional distress [Unknown]
  - Eustachian tube dysfunction [Unknown]

NARRATIVE: CASE EVENT DATE: 20021122
